FAERS Safety Report 20674339 (Version 1)
Quarter: 2022Q2

REPORT INFORMATION
  Report Type: Spontaneous
  Country: US (occurrence: None)
  Receive Date: 20220404
  Receipt Date: 20220404
  Transmission Date: 20220720
  Serious: No
  Sender: FDA-Public Use
  Company Number: None

PATIENT
  Age: 25 Year
  Sex: Female
  Weight: 57.6 kg

DRUGS (1)
  1. NEXAVAR [Suspect]
     Active Substance: SORAFENIB
     Indication: Angiosarcoma
     Dosage: FREQUENCY : DAILY;?
     Route: 048
     Dates: start: 20220304

REACTIONS (3)
  - Therapy interrupted [None]
  - Pain [None]
  - Haematemesis [None]

NARRATIVE: CASE EVENT DATE: 20220401
